FAERS Safety Report 6457000-X (Version None)
Quarter: 2009Q4

REPORT INFORMATION
  Report Type: 
  Country: None (occurrence: None)
  Receive Date: 20091125
  Receipt Date: 20091118
  Transmission Date: 20100525
  Serious: Yes (Life-Threatening, Hospitalization)
  Sender: FDA-Public Use
  Company Number: GB-PFIZER INC-2008020901

PATIENT
  Age: 60 Year
  Sex: Female
  Weight: 80 kg

DRUGS (11)
  1. PREDNISOLONE AND PREDNISOLONE STEAGLATE [Suspect]
     Dates: start: 20080121
  2. METHOTREXATE [Suspect]
     Dosage: 7.5 MG, WEEKLY
     Dates: start: 20071201
  3. ETANERCEPT [Suspect]
     Dosage: UNK
     Route: 058
     Dates: start: 20070101
  4. ASPIRIN [Concomitant]
  5. ATENOLOL [Concomitant]
  6. FRUSEMIDE [Concomitant]
  7. GLICLAZIDE [Concomitant]
  8. MELOXICAM [Concomitant]
  9. OMEPRAZOLE [Concomitant]
  10. ROSIGLITAZONE [Concomitant]
  11. ROSUVASTATIN [Concomitant]

REACTIONS (3)
  - BETA HAEMOLYTIC STREPTOCOCCAL INFECTION [None]
  - MULTI-ORGAN FAILURE [None]
  - SEPSIS [None]
